FAERS Safety Report 17074834 (Version 3)
Quarter: 2020Q2

REPORT INFORMATION
  Report Type: Report from Study
  Country: AR (occurrence: AR)
  Receive Date: 20191126
  Receipt Date: 20200529
  Transmission Date: 20200713
  Serious: Yes (Other)
  Sender: FDA-Public Use
  Company Number: AR-GLAXOSMITHKLINE-AR2019AMR126914

PATIENT
  Sex: Female

DRUGS (2)
  1. LEVOFLOXACIN. [Suspect]
     Active Substance: LEVOFLOXACIN
     Indication: PRODUCT USED FOR UNKNOWN INDICATION
     Dosage: UNK (500)
  2. MEPOLIZUMAB [Suspect]
     Active Substance: MEPOLIZUMAB
     Indication: ASTHMA
     Dosage: UNK
     Dates: start: 201812

REACTIONS (18)
  - Ocular discomfort [Unknown]
  - Hypersensitivity [Unknown]
  - Spinal fracture [Unknown]
  - Blindness unilateral [Unknown]
  - Nasopharyngitis [Unknown]
  - Chest discomfort [Unknown]
  - Limb operation [Unknown]
  - Fall [Unknown]
  - Nasal congestion [Unknown]
  - Productive cough [Unknown]
  - Sneezing [Unknown]
  - Myalgia [Unknown]
  - Pain in extremity [Unknown]
  - Vasculitis [Unknown]
  - Rhinorrhoea [Unknown]
  - Lacrimation increased [Unknown]
  - Cough [Unknown]
  - Spinal pain [Unknown]
